FAERS Safety Report 15800758 (Version 8)
Quarter: 2019Q3

REPORT INFORMATION
  Report Type: Spontaneous
  Country: CA (occurrence: CA)
  Receive Date: 20190109
  Receipt Date: 20190814
  Transmission Date: 20191004
  Serious: Yes (Hospitalization, Other)
  Sender: FDA-Public Use
  Company Number: CA-CELLTRION INC.-2019CA017671

PATIENT

DRUGS (7)
  1. INFLECTRA [Suspect]
     Active Substance: INFLIXIMAB-DYYB
     Indication: COLITIS ULCERATIVE
     Dosage: 5 MG/KG (WEEK 2, 6 AND THEN Q 8 WEEKS)
     Route: 042
     Dates: start: 20181217
  2. INFLECTRA [Suspect]
     Active Substance: INFLIXIMAB-DYYB
     Dosage: 5 MG/KG (WEEK 2, 6 AND THEN Q 8 WEEKS)
     Route: 042
     Dates: start: 20190328, end: 20190328
  3. INFLECTRA [Suspect]
     Active Substance: INFLIXIMAB-DYYB
     Dosage: 5 MG/KG (WEEK 2, 6 AND THEN Q 8 WEEKS)
     Route: 042
     Dates: start: 20190102
  4. INFLECTRA [Suspect]
     Active Substance: INFLIXIMAB-DYYB
     Dosage: 5 MG/KG (WEEK 2, 6 AND THEN Q 8 WEEKS)
     Route: 042
     Dates: start: 20190122
  5. INFLECTRA [Suspect]
     Active Substance: INFLIXIMAB-DYYB
     Dosage: 10 MG/KG (710 MG),  EVERY 4 WEEKS
     Route: 042
     Dates: start: 20190523, end: 20190523
  6. PREDNISONE. [Concomitant]
     Active Substance: PREDNISONE
     Dosage: UNK
  7. INFLECTRA [Suspect]
     Active Substance: INFLIXIMAB-DYYB
     Dosage: 10 MG/KG (710 MG),  EVERY 4 WEEKS
     Route: 042
     Dates: start: 20190422

REACTIONS (10)
  - Off label use [Unknown]
  - Condition aggravated [Unknown]
  - Condition aggravated [Recovered/Resolved]
  - Weight decreased [Unknown]
  - Heart rate irregular [Unknown]
  - Hepatic cirrhosis [Unknown]
  - Road traffic accident [Unknown]
  - Wound [Unknown]
  - Off label use [Unknown]
  - Product use issue [Unknown]

NARRATIVE: CASE EVENT DATE: 20190102
